FAERS Safety Report 12882291 (Version 6)
Quarter: 2017Q2

REPORT INFORMATION
  Report Type: Spontaneous
  Country: US (occurrence: US)
  Receive Date: 20161025
  Receipt Date: 20170426
  Transmission Date: 20170830
  Serious: Yes (Other)
  Sender: FDA-Public Use
  Company Number: US-CELGENEUS-USA-2016105088

PATIENT
  Sex: Male

DRUGS (4)
  1. REVLIMID [Suspect]
     Active Substance: LENALIDOMIDE
     Indication: PLASMA CELL MYELOMA
     Dosage: 25 MILLIGRAM
     Route: 048
     Dates: start: 200706
  2. REVLIMID [Suspect]
     Active Substance: LENALIDOMIDE
     Dosage: 15 MILLIGRAM
     Route: 048
     Dates: start: 200707, end: 201107
  3. ZOMETA [Concomitant]
     Active Substance: ZOLEDRONIC ACID
     Indication: PRODUCT USED FOR UNKNOWN INDICATION
     Route: 065
  4. DEXAMETHASONE. [Suspect]
     Active Substance: DEXAMETHASONE
     Indication: PRODUCT USED FOR UNKNOWN INDICATION
     Dosage: 40 MILLIGRAM
     Route: 065
     Dates: start: 200706, end: 201006

REACTIONS (19)
  - Depressed mood [Unknown]
  - Gallbladder disorder [Unknown]
  - Back disorder [Unknown]
  - Body height decreased [Unknown]
  - Back pain [Unknown]
  - Headache [Unknown]
  - Nausea [Unknown]
  - Amnesia [Unknown]
  - Pericarditis [Unknown]
  - Arthralgia [Unknown]
  - Asthenia [Unknown]
  - Spinal column injury [Unknown]
  - Genital disorder male [Unknown]
  - Ageusia [Unknown]
  - Gout [Unknown]
  - Nipple pain [Unknown]
  - Glaucoma [Unknown]
  - Muscle rupture [Unknown]
  - Anosmia [Unknown]

NARRATIVE: CASE EVENT DATE: 2008
